FAERS Safety Report 7240844-4 (Version None)
Quarter: 2011Q1

REPORT INFORMATION
  Report Type: 
  Country: None (occurrence: None)
  Receive Date: 20110124
  Receipt Date: 20110119
  Transmission Date: 20110831
  Serious: No
  Sender: FDA-Public Use
  Company Number: JP-JNJFOC-20101201193

PATIENT
  Sex: Female
  Weight: 45 kg

DRUGS (11)
  1. NORVASC [Concomitant]
     Route: 048
  2. AVAPRO [Concomitant]
     Route: 048
  3. MAGLAX [Concomitant]
     Indication: PROPHYLAXIS
     Route: 048
  4. ROPIVACAINE HYDROCHLORIDE [Concomitant]
     Indication: PAIN
     Route: 065
  5. EPAND [Concomitant]
     Route: 048
  6. CARBOCAIN [Concomitant]
     Indication: PAIN
     Route: 065
  7. DUROTEP MT PATCH [Suspect]
     Indication: PAIN
     Route: 062
  8. ALOSENN [Concomitant]
     Indication: CONSTIPATION
     Route: 048
  9. LIPODOWN [Concomitant]
     Route: 048
  10. NAUZELIN [Concomitant]
     Indication: PROPHYLAXIS
     Route: 048
  11. LYRICA [Concomitant]
     Indication: PAIN
     Route: 048

REACTIONS (2)
  - DRUG PRESCRIBING ERROR [None]
  - CONSTIPATION [None]
